FAERS Safety Report 8226717-9 (Version None)
Quarter: 2012Q1

REPORT INFORMATION
  Report Type: 
  Country: None (occurrence: None)
  Receive Date: 20120322
  Receipt Date: 20120313
  Transmission Date: 20120608
  Serious: Yes (Hospitalization)
  Sender: FDA-Public Use
  Company Number: US-BAYER-2011-062457

PATIENT
  Age: 42 Year
  Sex: Female
  Weight: 98.866 kg

DRUGS (14)
  1. AZITHROMYCIN [Concomitant]
     Dosage: 250 MG, UNK
  2. PROTONIX [Concomitant]
  3. YAZ [Suspect]
     Indication: MENSTRUAL CYCLE MANAGEMENT
  4. DARVOCET [Concomitant]
     Dosage: UNK
     Dates: end: 20090613
  5. MULTI-VITAMIN [Concomitant]
  6. VALIUM [Concomitant]
     Dosage: UNK
     Dates: start: 20090613
  7. NAFTIN [Concomitant]
  8. TERBINAFINE HCL [Concomitant]
  9. NAPROXEN [Concomitant]
  10. VICODIN [Concomitant]
     Dosage: UNK
     Dates: start: 20090613
  11. METHYLPREDNISOLONE [Concomitant]
  12. YAZ [Suspect]
     Indication: PREMENSTRUAL SYNDROME
     Dosage: UNK
     Dates: start: 20090201, end: 20090614
  13. ROCEPHIN [Concomitant]
  14. TIZANIDINE HCL [Concomitant]
     Dosage: UNK

REACTIONS (4)
  - DEEP VEIN THROMBOSIS [None]
  - PULMONARY EMBOLISM [None]
  - EMOTIONAL DISTRESS [None]
  - PAIN [None]
